FAERS Safety Report 6837069-0 (Version None)
Quarter: 2010Q3

REPORT INFORMATION
  Report Type: 
  Country: None (occurrence: None)
  Receive Date: 20100713
  Receipt Date: 20070503
  Transmission Date: 20110219
  Serious: No
  Sender: FDA-Public Use
  Company Number: US-PFIZER INC-2007036897

PATIENT
  Sex: Female
  Weight: 52.272 kg

DRUGS (9)
  1. CHANTIX [Suspect]
     Indication: SMOKING CESSATION THERAPY
     Dates: start: 20070423
  2. DOLONIL [Suspect]
     Dates: start: 20070401
  3. ACTONEL [Concomitant]
  4. CALCIUM [Concomitant]
  5. MULTI-VITAMINS [Concomitant]
  6. FISH OIL [Concomitant]
  7. COENZYME Q10 [Concomitant]
  8. VITIS VINIFERA EXTRACT [Concomitant]
  9. GENERAL NUTRIENTS/HERBAL NOS/MINERALS NOS [Concomitant]

REACTIONS (2)
  - DYSGEUSIA [None]
  - NAUSEA [None]
